FAERS Safety Report 5900437-5 (Version None)
Quarter: 2008Q3

REPORT INFORMATION
  Report Type: 
  Country: None (occurrence: None)
  Receive Date: 20080926
  Receipt Date: 20080915
  Transmission Date: 20090109
  Serious: Yes (Hospitalization)
  Sender: FDA-Public Use
  Company Number: US-PFIZER INC-2008063594

PATIENT
  Sex: Female
  Weight: 93.9 kg

DRUGS (1)
  1. GEODON [Suspect]
     Indication: SCHIZOAFFECTIVE DISORDER
     Dosage: TEXT:160MG IN AM, 80MG IN PM-FREQ:DAILY
     Dates: start: 20080101, end: 20080601

REACTIONS (9)
  - BLOOD CREATINE PHOSPHOKINASE INCREASED [None]
  - COGWHEEL RIGIDITY [None]
  - DEHYDRATION [None]
  - IMMOBILE [None]
  - MENTAL STATUS CHANGES [None]
  - MUSCLE RIGIDITY [None]
  - PAIN OF SKIN [None]
  - SUBSTANCE ABUSE [None]
  - WHITE BLOOD CELL COUNT INCREASED [None]
